FAERS Safety Report 18509165 (Version 1)
Quarter: 2020Q4

REPORT INFORMATION
  Report Type: Spontaneous
  Country: SE (occurrence: SE)
  Receive Date: 20201117
  Receipt Date: 20201117
  Transmission Date: 20210114
  Serious: Yes (Other)
  Sender: FDA-Public Use
  Company Number: SE-009507513-2011SWE009247

PATIENT
  Age: 58 Year
  Sex: Female

DRUGS (1)
  1. NASONEX [Suspect]
     Active Substance: MOMETASONE FUROATE
     Indication: OTOSALPINGITIS
     Dosage: DOSE: 1, QD (TWO ACTUATIONS IN EACH NOSTRIL ONCE DAILY FOR AT LEAST 3-4 WEEKS) (STRENGTH: 50 MICROGR
     Dates: start: 20201010, end: 20201013

REACTIONS (2)
  - Vitreous detachment [Not Recovered/Not Resolved]
  - Intraocular pressure increased [Not Recovered/Not Resolved]

NARRATIVE: CASE EVENT DATE: 20201013
